FAERS Safety Report 4555592-9 (Version None)
Quarter: 2005Q1

REPORT INFORMATION
  Report Type: 
  Country: None (occurrence: None)
  Receive Date: 20041228
  Receipt Date: 20040128
  Transmission Date: 20050727
  Serious: Yes (Other)
  Sender: FDA-Public Use
  Company Number: PHEH2003US11147

PATIENT
  Sex: Male

DRUGS (6)
  1. AREDIA [Suspect]
     Dosage: 90 MG, QMO , INTRAVENOUS
     Route: 042
     Dates: start: 20001101, end: 20010801
  2. CHEMOTHERAPEUTICS, OTHER [Concomitant]
  3. ZOCOR [Concomitant]
  4. ACCUPRIL [Concomitant]
  5. TRENTAL [Concomitant]
  6. AMLODIPINE [Concomitant]

REACTIONS (3)
  - BONE DISORDER [None]
  - OSTEOLYSIS [None]
  - VISUAL DISTURBANCE [None]
